FAERS Safety Report 5431672-0 (Version None)
Quarter: 2007Q3

REPORT INFORMATION
  Report Type: 
  Country: None (occurrence: None)
  Receive Date: 20070828
  Receipt Date: 20070815
  Transmission Date: 20080115
  Serious: Yes (Hospitalization, Disabling, Other)
  Sender: FDA-Public Use
  Company Number: 238071K06USA

PATIENT
  Age: 49 Year
  Sex: Female

DRUGS (11)
  1. REBIF [Suspect]
     Indication: MULTIPLE SCLEROSIS
     Dosage: 44 MCG, 3 IN 1 WEEKS, SUBCUTANEOUS
     Route: 058
     Dates: start: 20060609
  2. STEROIDS (CORTICOSTEROIDS) [Suspect]
     Dosage: INTRAVENOUS
     Route: 042
     Dates: end: 20060101
  3. PROVIGIL [Concomitant]
  4. CYMBALTA [Concomitant]
  5. RISPERDAL [Concomitant]
  6. ZANAFLEX [Concomitant]
  7. OXYCONTIN [Concomitant]
  8. XANAX [Concomitant]
  9. DETROL LA [Concomitant]
  10. SOMA [Concomitant]
  11. PREDNISONE (PREDNISONE /00044701/) [Concomitant]

REACTIONS (1)
  - OSTEONECROSIS [None]
